FAERS Safety Report 7371263-8 (Version None)
Quarter: 2011Q1

REPORT INFORMATION
  Report Type: 
  Country: None (occurrence: None)
  Receive Date: 20110324
  Receipt Date: 20110318
  Transmission Date: 20110831
  Serious: Yes (Hospitalization)
  Sender: FDA-Public Use
  Company Number: SE-BAXTER-2010BH026087

PATIENT
  Sex: Female
  Weight: 48 kg

DRUGS (1)
  1. GAMMAGARD LIQUID [Suspect]
     Indication: CHRONIC LYMPHOCYTIC LEUKAEMIA
     Route: 042
     Dates: start: 20101013, end: 20101013

REACTIONS (5)
  - DIARRHOEA [None]
  - BACK PAIN [None]
  - VOMITING [None]
  - CHILLS [None]
  - PYREXIA [None]
